FAERS Safety Report 8816660 (Version 1)
Quarter: 2012Q4

REPORT INFORMATION
  Report Type: Spontaneous
  Country: GB (occurrence: None)
  Receive Date: 20120928
  Receipt Date: 20120928
  Transmission Date: 20130627
  Serious: Yes (Other)
  Sender: FDA-Public Use
  Company Number: ABR_00635_2012

PATIENT
  Age: 23 Year
  Sex: Female
  Weight: 62 kg

DRUGS (4)
  1. ERYTHROMYCIN [Suspect]
     Indication: PRODUCT USED FOR UNKNOWN INDICATION
     Dosage: (DF Oral)
     Route: 048
     Dates: start: 20120824, end: 20120831
  2. ERYTHROMYCIN [Suspect]
     Indication: PRODUCT USED FOR UNKNOWN INDICATION
     Dosage: (DF Oral)
     Route: 048
     Dates: start: 20120903
  3. PREDNISOLONE [Concomitant]
  4. MICROGYNON /00022701/ [Concomitant]

REACTIONS (1)
  - Angioedema [None]
